FAERS Safety Report 5088942-8 (Version None)
Quarter: 2006Q3

REPORT INFORMATION
  Report Type: 
  Country: None (occurrence: None)
  Receive Date: 20060822
  Receipt Date: 20060804
  Transmission Date: 20061208
  Serious: Yes (Death)
  Sender: FDA-Public Use
  Company Number: JP200605000274

PATIENT
  Age: 22 Year
  Sex: Female
  Weight: 72 kg

DRUGS (3)
  1. GEMZAR [Suspect]
     Indication: OVARIAN EPITHELIAL CANCER
     Dosage: 1360 MG, OTHER, INTRAVENOUS
     Route: 042
     Dates: start: 20060427, end: 20060427
  2. MS CONTIN (MORPHINE SULFATE) TABLET [Concomitant]
  3. MORPHINE (MORPHINE) INJECTION [Concomitant]

REACTIONS (16)
  - ASTHMA [None]
  - BLOOD PRESSURE DIASTOLIC DECREASED [None]
  - CARDIO-RESPIRATORY ARREST [None]
  - CELL DEATH [None]
  - DIFFUSE ALVEOLAR DAMAGE [None]
  - DILATATION VENTRICULAR [None]
  - DYSPNOEA [None]
  - HAEMORRHAGIC ASCITES [None]
  - HEPATIC CONGESTION [None]
  - HYPERHIDROSIS [None]
  - MALIGNANT NEOPLASM PROGRESSION [None]
  - PANCREATITIS ACUTE [None]
  - PLEURAL ADHESION [None]
  - PULMONARY CONGESTION [None]
  - SPLENOMEGALY [None]
  - UTERINE ATROPHY [None]
